FAERS Safety Report 5130243-3 (Version None)
Quarter: 2006Q4

REPORT INFORMATION
  Report Type: 
  Country: None (occurrence: None)
  Receive Date: 20061013
  Receipt Date: 20060928
  Transmission Date: 20070319
  Serious: Yes (Hospitalization)
  Sender: FDA-Public Use
  Company Number: REM_00257_2006

PATIENT
  Age: 18 Year
  Sex: Female

DRUGS (4)
  1. REMODULIN [Suspect]
     Indication: PULMONARY HYPERTENSION
     Dosage: 61 NG/KG/MIN CONTINUOUS IV
     Route: 042
     Dates: start: 20040812
  2. DIGOXIN [Concomitant]
  3. LASIX [Concomitant]
  4. COUMADIN [Concomitant]

REACTIONS (8)
  - ANAPHYLACTIC REACTION [None]
  - BACILLUS INFECTION [None]
  - CENTRAL LINE INFECTION [None]
  - COUGH [None]
  - DRUG HYPERSENSITIVITY [None]
  - INFUSION SITE IRRITATION [None]
  - PATHOGEN RESISTANCE [None]
  - RHODOCOCCUS INFECTION [None]
